FAERS Safety Report 8175853-4 (Version None)
Quarter: 2012Q1

REPORT INFORMATION
  Report Type: 
  Country: None (occurrence: None)
  Receive Date: 20120301
  Receipt Date: 20120220
  Transmission Date: 20120608
  Serious: Yes (Hospitalization)
  Sender: FDA-Public Use
  Company Number: US-MPIJNJ-2012-00339

PATIENT
  Sex: Male

DRUGS (2)
  1. VELCADE [Suspect]
     Indication: MULTIPLE MYELOMA
     Dosage: 2.5 MG, CYCLIC
     Route: 040
     Dates: start: 20110509, end: 20110512
  2. VELCADE [Suspect]
     Dosage: UNK
     Dates: start: 20090101

REACTIONS (2)
  - CHEST DISCOMFORT [None]
  - DYSPNOEA [None]
